FAERS Safety Report 7459280-0 (Version None)
Quarter: 2011Q2

REPORT INFORMATION
  Report Type: 
  Country: None (occurrence: None)
  Receive Date: 20110504
  Receipt Date: 20110504
  Transmission Date: 20111010
  Serious: Yes (Other)
  Sender: FDA-Public Use
  Company Number: None

PATIENT
  Age: 26 Year
  Sex: Female
  Weight: 52.1637 kg

DRUGS (2)
  1. DERMACARE(280MG CAPSULE,THE HIMALAYA DRUG CO.) [Suspect]
     Indication: ACNE
     Dosage: 2 CAPSULES TWICE DAILY WITH MEALS
     Dates: start: 20110315, end: 20110317
  2. DERMACARE(280MG CAPSULE,THE HIMALAYA DRUG CO.) [Suspect]
     Indication: ACNE
     Dosage: 2 CAPSULES TWICE DAILY WITH MEALS
     Dates: start: 20110319, end: 20110321

REACTIONS (2)
  - ABDOMINAL PAIN UPPER [None]
  - HAEMATOCHEZIA [None]
